FAERS Safety Report 17218700 (Version 1)
Quarter: 2019Q4

REPORT INFORMATION
  Report Type: Spontaneous
  Country: IT (occurrence: IT)
  Receive Date: 20191231
  Receipt Date: 20191231
  Transmission Date: 20200122
  Serious: Yes (Other)
  Sender: FDA-Public Use
  Company Number: IT-ROCHE-2505004

PATIENT
  Age: 42 Year
  Sex: Male

DRUGS (2)
  1. TRASTUZUMAB. [Suspect]
     Active Substance: TRASTUZUMAB
     Indication: COLORECTAL CANCER METASTATIC
     Dosage: 16 COURSES
     Route: 065
     Dates: start: 201410
  2. LAPATINIB [Suspect]
     Active Substance: LAPATINIB
     Indication: COLORECTAL CANCER METASTATIC
     Dosage: 16 COURSES
     Route: 065
     Dates: start: 201410

REACTIONS (5)
  - Adenocarcinoma of colon [Unknown]
  - Metastases to lung [Unknown]
  - Intentional product use issue [Unknown]
  - Malignant neoplasm progression [Unknown]
  - Off label use [Unknown]
